FAERS Safety Report 12421304 (Version 4)
Quarter: 2016Q4

REPORT INFORMATION
  Report Type: Report from Study
  Country: US (occurrence: US)
  Receive Date: 20160531
  Receipt Date: 20161017
  Transmission Date: 20170207
  Serious: Yes (Hospitalization, Other)
  Sender: FDA-Public Use
  Company Number: US-JNJFOC-20160527278

PATIENT
  Age: 70 Year
  Sex: Male

DRUGS (12)
  1. ENOXAPARIN [Suspect]
     Active Substance: ENOXAPARIN
     Indication: PRODUCT USED FOR UNKNOWN INDICATION
  2. ASPIRIN. [Suspect]
     Active Substance: ASPIRIN
     Indication: PRODUCT USED FOR UNKNOWN INDICATION
  3. OXYGEN. [Concomitant]
     Active Substance: OXYGEN
  4. METOPROLOL. [Concomitant]
     Active Substance: METOPROLOL
  5. IMBRUVICA [Suspect]
     Active Substance: IBRUTINIB
     Indication: CHRONIC LYMPHOCYTIC LEUKAEMIA
     Route: 048
     Dates: start: 20150130, end: 201605
  6. ELIQUIS [Concomitant]
     Active Substance: APIXABAN
     Indication: ATRIAL FIBRILLATION
  7. METOPROLOL. [Concomitant]
     Active Substance: METOPROLOL
  8. VENLAFAXINE [Concomitant]
     Active Substance: VENLAFAXINE HYDROCHLORIDE
  9. LOVENOX [Suspect]
     Active Substance: ENOXAPARIN SODIUM
     Indication: PRODUCT USED FOR UNKNOWN INDICATION
     Route: 065
  10. ALBUTEROL SULFATE. [Concomitant]
     Active Substance: ALBUTEROL SULFATE
  11. MONTELUKAST [Concomitant]
     Active Substance: MONTELUKAST SODIUM
  12. AZITHROMYCIN ANHYDROUS. [Concomitant]
     Active Substance: AZITHROMYCIN ANHYDROUS

REACTIONS (12)
  - Angina unstable [Unknown]
  - Atrial fibrillation [Recovered/Resolved]
  - Actinic keratosis [Unknown]
  - Intra-abdominal haematoma [Recovering/Resolving]
  - Bronchitis chronic [Unknown]
  - Disease progression [Unknown]
  - Haemorrhage [Recovering/Resolving]
  - Acute kidney injury [Unknown]
  - Basal cell carcinoma [Unknown]
  - Acute myocardial infarction [Recovered/Resolved]
  - Bladder obstruction [Recovered/Resolved]
  - Pneumonia respiratory syncytial viral [Recovered/Resolved]

NARRATIVE: CASE EVENT DATE: 20151105
